FAERS Safety Report 5335037-1 (Version None)
Quarter: 2007Q2

REPORT INFORMATION
  Report Type: 
  Country: None (occurrence: None)
  Receive Date: 20070525
  Receipt Date: 20070524
  Transmission Date: 20071010
  Serious: Yes (Other)
  Sender: FDA-Public Use
  Company Number: A0649946A

PATIENT
  Age: 50 Year
  Sex: Female

DRUGS (4)
  1. SEREVENT [Suspect]
     Indication: ASTHMA
     Route: 055
  2. ADVAIR DISKUS 100/50 [Suspect]
     Indication: ASTHMA
     Route: 055
  3. FLONASE [Concomitant]
  4. VENTOLIN [Concomitant]
     Indication: ASTHMA
     Route: 055

REACTIONS (3)
  - ASTHMA [None]
  - CANDIDIASIS [None]
  - PHARMACEUTICAL PRODUCT COMPLAINT [None]
